FAERS Safety Report 4893153-2 (Version None)
Quarter: 2005Q4

REPORT INFORMATION
  Report Type: 
  Country: None (occurrence: None)
  Receive Date: 20051223
  Receipt Date: 20051103
  Transmission Date: 20060501
  Serious: No
  Sender: FDA-Public Use
  Company Number: 219191

PATIENT
  Age: 62 Year
  Sex: Male

DRUGS (2)
  1. AVASTIN [Suspect]
     Dosage: RENAL CELL CARCINOMA STAGE UNSPECIFIED
  2. TARCEVA [Concomitant]

REACTIONS (1)
  - PROTEINURIA [None]
